FAERS Safety Report 23499057 (Version 1)
Quarter: 2024Q1

REPORT INFORMATION
  Report Type: Spontaneous
  Country: CA (occurrence: CA)
  Receive Date: 20240208
  Receipt Date: 20240208
  Transmission Date: 20240410
  Serious: Yes (Hospitalization, Other)
  Sender: FDA-Public Use
  Company Number: CA-CELLTRION INC.-2023CA000246

PATIENT

DRUGS (11)
  1. YUFLYMA [Suspect]
     Active Substance: ADALIMUMAB-AATY
     Indication: Ankylosing spondylitis
     Dosage: 40MG EVERY 2 WEEKS
     Route: 058
     Dates: start: 20221202
  2. YUFLYMA [Suspect]
     Active Substance: ADALIMUMAB-AATY
     Dosage: 40MG EVERY 2 WEEKS
     Route: 058
     Dates: start: 20230102
  3. HYDROMORPHONE [Concomitant]
     Active Substance: HYDROMORPHONE
     Dosage: 12X DAILY, SLOW ACTING 3MG 2 TIMES (HAS FAST AND SLOW ACTING)
  4. BACLOFEN [Concomitant]
     Active Substance: BACLOFEN
     Dosage: PRN 10MG (3X DAILY)
  5. PANTOPRAZOLE SODIUM [Concomitant]
     Active Substance: PANTOPRAZOLE SODIUM
     Dosage: 40MG 2 TIMES DAILY
  6. AMITRIPTYLINE [Concomitant]
     Active Substance: AMITRIPTYLINE
     Dosage: 25MG X2 BEDTIME
  7. TYLENOL [Concomitant]
     Active Substance: ACETAMINOPHEN
     Indication: Arthritis
  8. SUCRALFATE [Concomitant]
     Active Substance: SUCRALFATE
     Indication: Pancreatic disorder
     Dosage: AS NEEDED
  9. PREDNISONE [Concomitant]
     Active Substance: PREDNISONE
     Indication: Ankylosing spondylitis
     Dosage: LAST TIME WAS OCTOBER, DIDN^T HELP, THEN SWITCHED TO YUFLYMA - WORKING WELL
  10. COSENTYX [Concomitant]
     Active Substance: SECUKINUMAB
  11. PANTOPRAZOLE SODIUM [Concomitant]
     Active Substance: PANTOPRAZOLE SODIUM
     Dosage: 40 MILLIGRAM

REACTIONS (5)
  - Pancreatitis [Recovered/Resolved]
  - Cholecystitis [Recovered/Resolved]
  - Nasopharyngitis [Recovered/Resolved]
  - Therapeutic response changed [Recovered/Resolved]
  - Intentional dose omission [Recovered/Resolved]

NARRATIVE: CASE EVENT DATE: 20221226
